FAERS Safety Report 23584853 (Version 1)
Quarter: 2024Q1

REPORT INFORMATION
  Report Type: Report from Study
  Country: CA (occurrence: CA)
  Receive Date: 20240301
  Receipt Date: 20240301
  Transmission Date: 20240409
  Serious: Yes (Hospitalization, Other)
  Sender: FDA-Public Use
  Company Number: CA-TAKEDA-2024TUS002720

PATIENT
  Sex: Female

DRUGS (6)
  1. VEDOLIZUMAB [Suspect]
     Active Substance: VEDOLIZUMAB
     Indication: Crohn^s disease
     Dosage: 300 MILLIGRAM
     Route: 042
     Dates: start: 20220315
  2. SYNTHROID [Concomitant]
     Active Substance: LEVOTHYROXINE SODIUM
     Dosage: 88 MICROGRAM
     Route: 048
  3. TELMISARTAN [Concomitant]
     Active Substance: TELMISARTAN
     Dosage: UNK
     Route: 048
  4. PANTOPRAZOLE [Concomitant]
     Active Substance: PANTOPRAZOLE
     Dosage: 40 MILLIGRAM
     Route: 048
  5. FERAMAX [Concomitant]
     Active Substance: IRON\POLYSACCHARIDES
     Dosage: 150 MILLIGRAM
     Route: 048
  6. IRON [Concomitant]
     Active Substance: IRON
     Dosage: UNK
     Route: 048

REACTIONS (15)
  - Gastrointestinal inflammation [Unknown]
  - Uveitis [Unknown]
  - Skin cancer [Unknown]
  - Pain [Unknown]
  - Vascular access site bruising [Unknown]
  - Diarrhoea [Unknown]
  - Faeces discoloured [Unknown]
  - Gastrointestinal sounds abnormal [Unknown]
  - Hiatus hernia [Unknown]
  - Anal incontinence [Unknown]
  - Anaemia [Unknown]
  - Malaise [Unknown]
  - Abdominal pain [Unknown]
  - Flatulence [Unknown]
  - Fatigue [Unknown]
